FAERS Safety Report 7203967-1 (Version None)
Quarter: 2010Q4

REPORT INFORMATION
  Report Type: 
  Country: None (occurrence: None)
  Receive Date: 20101230
  Receipt Date: 20101220
  Transmission Date: 20110411
  Serious: Yes (Hospitalization, Other)
  Sender: FDA-Public Use
  Company Number: FR-ELI_LILLY_AND_COMPANY-FR201012004708

PATIENT
  Sex: Female

DRUGS (9)
  1. STRATTERA [Suspect]
     Dosage: 60 MG, DAILY (1/D)
     Route: 048
     Dates: end: 20101114
  2. STRATTERA [Suspect]
     Dosage: 60 MG, UNK
     Dates: start: 20101120, end: 20101122
  3. ARICEPT [Concomitant]
     Dosage: 5 MG, UNK
     Dates: end: 20101117
  4. ASPEGIC 1000 [Concomitant]
     Dosage: 100 MG, DAILY (1/D)
  5. TOCO [Concomitant]
     Dosage: 1 D/F, UNK
  6. CHONDROSULF [Concomitant]
     Dosage: 1 D/F, UNK
  7. SEROQUEL [Concomitant]
     Dosage: 25 MG, AS NEEDED
     Dates: end: 20101113
  8. DEROXAT [Concomitant]
     Dosage: 20 MG, UNK
     Dates: end: 20101114
  9. MULTI-VITAMIN [Concomitant]
     Dosage: 1 D/F, DAILY (1/D)

REACTIONS (7)
  - CLONUS [None]
  - DISTURBANCE IN ATTENTION [None]
  - HYPONATRAEMIA [None]
  - LOSS OF CONSCIOUSNESS [None]
  - ORTHOSTATIC HYPOTENSION [None]
  - RENAL FAILURE ACUTE [None]
  - SYNCOPE [None]
